FAERS Safety Report 8014104-8 (Version None)
Quarter: 2011Q4

REPORT INFORMATION
  Report Type: 
  Country: None (occurrence: None)
  Receive Date: 20111223
  Receipt Date: 20111203
  Transmission Date: 20120403
  Serious: Yes (Disabling)
  Sender: FDA-Public Use
  Company Number: CC11-0566

PATIENT
  Sex: Male

DRUGS (1)
  1. ERYTHROMYCIN AND BENZOYL PEROXIDE TOPICAL GEL USP, 3%, 5% [Suspect]
     Indication: ACNE

REACTIONS (2)
  - BURNING SENSATION [None]
  - SCAR [None]
